FAERS Safety Report 4684870-8 (Version None)
Quarter: 2005Q2

REPORT INFORMATION
  Report Type: 
  Country: None (occurrence: None)
  Receive Date: 20050327
  Receipt Date: 20050315
  Transmission Date: 20051028
  Serious: No
  Sender: FDA-Public Use
  Company Number: PHEH2005US03218

PATIENT

DRUGS (1)
  1. ZELNORM [Suspect]
     Dosage: ORAL
     Route: 048

REACTIONS (1)
  - BURNING SENSATION [None]
